FAERS Safety Report 18032654 (Version 2)
Quarter: 2021Q1

REPORT INFORMATION
  Report Type: Spontaneous
  Country: CA (occurrence: CA)
  Receive Date: 20200716
  Receipt Date: 20210302
  Transmission Date: 20210419
  Serious: Yes (Hospitalization, Other)
  Sender: FDA-Public Use
  Company Number: CA-ELI_LILLY_AND_COMPANY-CA202007002158

PATIENT
  Sex: Male

DRUGS (41)
  1. FLUPENTIXOL [Suspect]
     Active Substance: FLUPENTIXOL
     Indication: SCHIZOPHRENIA
     Dosage: 6 MG, UNKNOWN
     Route: 065
  2. HALOPERIDOL. [Suspect]
     Active Substance: HALOPERIDOL
     Indication: SCHIZOPHRENIA
     Dosage: 6 MG, UNKNOWN
     Route: 065
  3. LOXAPINE SUCCINATE. [Suspect]
     Active Substance: LOXAPINE SUCCINATE
     Indication: SCHIZOPHRENIA
     Dosage: 50 MG, UNKNOWN
     Route: 048
  4. LOXAPINE SUCCINATE. [Suspect]
     Active Substance: LOXAPINE SUCCINATE
     Dosage: 200 MG, UNKNOWN
     Route: 065
  5. LOXAPINE SUCCINATE. [Suspect]
     Active Substance: LOXAPINE SUCCINATE
     Dosage: 50 MG, UNKNOWN
     Route: 065
  6. QUETIAPINE. [Suspect]
     Active Substance: QUETIAPINE
     Indication: SCHIZOPHRENIA
     Dosage: 600 MG, UNKNOWN
     Route: 065
  7. RISPERIDONE. [Suspect]
     Active Substance: RISPERIDONE
     Dosage: 3 MG, UNKNOWN
     Route: 065
  8. PROZAC [Suspect]
     Active Substance: FLUOXETINE HYDROCHLORIDE
     Indication: SCHIZOPHRENIA
     Dosage: 80 MG, UNKNOWN
     Route: 065
  9. ARIPIPRAZOLE. [Suspect]
     Active Substance: ARIPIPRAZOLE
     Indication: SCHIZOPHRENIA
     Dosage: 30 MG, UNKNOWN
     Route: 048
  10. CLOZAPINE. [Suspect]
     Active Substance: CLOZAPINE
     Indication: SCHIZOPHRENIA
     Dosage: 350 MG, UNKNOWN
     Route: 065
  11. LITHIUM CARBONATE. [Suspect]
     Active Substance: LITHIUM CARBONATE
     Indication: SCHIZOPHRENIA
     Dosage: 1800 MG, UNKNOWN
     Route: 065
  12. HALOPERIDOL. [Suspect]
     Active Substance: HALOPERIDOL
     Dosage: 5 MG, UNKNOWN
     Route: 065
  13. RISPERIDONE. [Suspect]
     Active Substance: RISPERIDONE
     Indication: SCHIZOPHRENIA
     Dosage: 8 MG, UNKNOWN
     Route: 065
  14. OLANZAPINE. [Suspect]
     Active Substance: OLANZAPINE
     Dosage: 20 MG, UNKNOWN
     Route: 065
  15. OLANZAPINE. [Suspect]
     Active Substance: OLANZAPINE
     Dosage: 15 MG, UNKNOWN
     Route: 065
  16. SAPHRIS [Suspect]
     Active Substance: ASENAPINE MALEATE
     Indication: SCHIZOPHRENIA
     Dosage: 100 MG, UNKNOWN
     Route: 048
  17. CLOMIPRAMINE [Suspect]
     Active Substance: CLOMIPRAMINE
     Indication: SCHIZOPHRENIA
     Dosage: 250 MG, UNKNOWN
     Route: 065
  18. GABAPENTIN. [Suspect]
     Active Substance: GABAPENTIN
     Indication: SCHIZOPHRENIA
     Dosage: 1600 MG, UNKNOWN
     Route: 065
  19. LITHIUM CARBONATE. [Suspect]
     Active Substance: LITHIUM CARBONATE
     Dosage: 2400 MG, UNKNOWN
     Route: 065
  20. LOXAPINE SUCCINATE. [Suspect]
     Active Substance: LOXAPINE SUCCINATE
     Dosage: 200 MG, UNKNOWN
     Route: 065
  21. ZIPRASIDONE. [Suspect]
     Active Substance: ZIPRASIDONE
     Indication: SCHIZOPHRENIA
     Dosage: 100 MG, UNKNOWN
     Route: 048
  22. LITHIUM CARBONATE. [Suspect]
     Active Substance: LITHIUM CARBONATE
     Dosage: 1050 MG, UNKNOWN
     Route: 065
  23. OLANZAPINE. [Suspect]
     Active Substance: OLANZAPINE
     Indication: SCHIZOPHRENIA
     Dosage: 40 MG, UNKNOWN
     Route: 065
  24. SODIUM VALPROATE [Concomitant]
     Active Substance: VALPROATE SODIUM
     Indication: SCHIZOPHRENIA
     Dosage: 1000 MG
  25. SODIUM VALPROATE [Concomitant]
     Active Substance: VALPROATE SODIUM
     Dosage: 1200 MG
  26. FLUOXETINE HYDROCHLORIDE. [Suspect]
     Active Substance: FLUOXETINE HYDROCHLORIDE
     Indication: SCHIZOPHRENIA
     Dosage: 80 MG, UNKNOWN
     Route: 065
  27. LOXAPINE SUCCINATE. [Suspect]
     Active Substance: LOXAPINE SUCCINATE
     Dosage: 75 MG, UNKNOWN
     Route: 065
  28. ZELDOX [Suspect]
     Active Substance: ZIPRASIDONE
     Indication: SCHIZOPHRENIA
     Dosage: 100 MG, UNKNOWN
     Route: 065
  29. ASENAPINE MALEATE [Suspect]
     Active Substance: ASENAPINE MALEATE
     Indication: SCHIZOPHRENIA
     Dosage: UNK UNK, UNKNOWN
     Route: 065
  30. CITALOPRAM [Suspect]
     Active Substance: CITALOPRAM HYDROBROMIDE
     Indication: SCHIZOPHRENIA
     Dosage: 80 MG, UNKNOWN
     Route: 065
  31. LOXAPINE SUCCINATE. [Suspect]
     Active Substance: LOXAPINE SUCCINATE
     Dosage: 75 MG, UNKNOWN
     Route: 065
  32. QUETIAPINE FUMARATE. [Suspect]
     Active Substance: QUETIAPINE FUMARATE
     Indication: SCHIZOPHRENIA
     Dosage: 600 MG, UNKNOWN
     Route: 065
  33. RISPERIDONE. [Suspect]
     Active Substance: RISPERIDONE
     Dosage: 4 MG, UNKNOWN
     Route: 065
  34. ABILIFY [Suspect]
     Active Substance: ARIPIPRAZOLE
     Indication: SCHIZOPHRENIA
     Dosage: 30 MG, UNKNOWN
     Route: 048
  35. AMISULPRIDE [Suspect]
     Active Substance: AMISULPRIDE
     Indication: SCHIZOPHRENIA
     Dosage: 1200 MG, UNKNOWN
     Route: 065
  36. GABAPENTIN. [Suspect]
     Active Substance: GABAPENTIN
     Dosage: 1800 MG, UNKNOWN
     Route: 065
  37. GABAPENTIN. [Suspect]
     Active Substance: GABAPENTIN
     Dosage: 600 MG, UNKNOWN
     Route: 065
  38. PERPHENAZINE. [Suspect]
     Active Substance: PERPHENAZINE
     Indication: SCHIZOPHRENIA
     Dosage: 32 MG, UNKNOWN
     Route: 065
  39. THIORIDAZINE [Suspect]
     Active Substance: THIORIDAZINE
     Indication: SCHIZOPHRENIA
     Dosage: UNK, UNKNOWN
     Route: 048
  40. TRIFLUOPERAZINE [Suspect]
     Active Substance: TRIFLUOPERAZINE HYDROCHLORIDE
     Indication: SCHIZOPHRENIA
     Dosage: 5 MG, UNKNOWN
     Route: 065
  41. SODIUM VALPROATE [Concomitant]
     Active Substance: VALPROATE SODIUM
     Dosage: 1250 MG

REACTIONS (16)
  - Disinhibition [Unknown]
  - Therapeutic product effect incomplete [Unknown]
  - Toxicity to various agents [Unknown]
  - Akathisia [Unknown]
  - Drug ineffective [Unknown]
  - Product use in unapproved indication [Unknown]
  - Suicide attempt [Unknown]
  - Euphoric mood [Unknown]
  - Leukaemia [Unknown]
  - Increased appetite [Unknown]
  - Antipsychotic drug level below therapeutic [Unknown]
  - Prescribed overdose [Unknown]
  - Obsessive-compulsive disorder [Unknown]
  - Weight increased [Unknown]
  - Leukopenia [Unknown]
  - Therapeutic product effect variable [Unknown]
